FAERS Safety Report 22255357 (Version 1)
Quarter: 2023Q2

REPORT INFORMATION
  Report Type: Spontaneous
  Country: NL (occurrence: NL)
  Receive Date: 20230426
  Receipt Date: 20230426
  Transmission Date: 20230722
  Serious: Yes (Life-Threatening)
  Sender: FDA-Public Use
  Company Number: None

PATIENT
  Sex: Female
  Weight: 40 kg

DRUGS (2)
  1. ETHINYL ESTRADIOL\LEVONORGESTREL [Suspect]
     Active Substance: ETHINYL ESTRADIOL\LEVONORGESTREL
     Indication: Menstrual discomfort
     Dosage: 1 X PER DAY
     Dates: start: 20230227, end: 20230416
  2. ARIPIPRAZOLE [Concomitant]
     Active Substance: ARIPIPRAZOLE
     Dosage: TABLET, 3 MG (MILLIGRAM)

REACTIONS (3)
  - Depression [Recovering/Resolving]
  - Suicidal ideation [Recovering/Resolving]
  - Off label use [Unknown]
